FAERS Safety Report 8603552-0 (Version None)
Quarter: 2012Q3

REPORT INFORMATION
  Report Type: 
  Country: None (occurrence: None)
  Receive Date: 20120817
  Receipt Date: 20120814
  Transmission Date: 20120928
  Serious: Yes (Disabling, Other)
  Sender: FDA-Public Use
  Company Number: CN-ROCHE-613847

PATIENT
  Sex: Female
  Weight: 63 kg

DRUGS (7)
  1. CELLCEPT [Suspect]
     Dosage: 500MG IN THE MORNING AND 750MG IN THE EVENING
     Route: 048
  2. CELLCEPT [Suspect]
     Route: 048
  3. CELLCEPT [Suspect]
     Route: 048
  4. CELLCEPT [Suspect]
     Dosage: 250MG IN THE MORNING AND 500MG IN THE EVENING
     Route: 048
  5. CELLCEPT [Suspect]
     Indication: RENAL TRANSPLANT
     Route: 048
     Dates: start: 20071213, end: 20120501
  6. PREDNISONE TAB [Suspect]
     Indication: RENAL TRANSPLANT
     Dosage: REPORTED AS RECEIVED IN THE MORNING.
     Route: 048
     Dates: start: 20071213, end: 20080101
  7. NEORAL [Concomitant]
     Indication: RENAL TRANSPLANT
     Dosage: REPORTED AS 75 MG IN THE MORNING AND 50 MG AT NIGHT.
     Route: 048

REACTIONS (5)
  - TINNITUS [None]
  - OSTEONECROSIS [None]
  - EMOTIONAL DISTRESS [None]
  - WHITE BLOOD CELL COUNT DECREASED [None]
  - INSOMNIA [None]
